FAERS Safety Report 21019007 (Version 1)
Quarter: 2022Q2

REPORT INFORMATION
  Report Type: Spontaneous
  Country: CA (occurrence: CA)
  Receive Date: 20220628
  Receipt Date: 20220628
  Transmission Date: 20220721
  Serious: Yes (Other)
  Sender: FDA-Public Use
  Company Number: CA-PFIZER INC-202200902082

PATIENT
  Age: 46 Year
  Sex: Male
  Weight: 117.5 kg

DRUGS (15)
  1. SULFASALAZINE [Suspect]
     Active Substance: SULFASALAZINE
     Dosage: 1 DF, UNK DOSE, FREQ
     Route: 065
  2. ADALIMUMAB [Concomitant]
     Active Substance: ADALIMUMAB
     Dosage: 40 MG Q 2 WEEK
     Route: 058
     Dates: start: 20140725
  3. ADALIMUMAB [Concomitant]
     Active Substance: ADALIMUMAB
     Dosage: 40 MG Q 2 WEEK
     Route: 058
     Dates: start: 20150425
  4. ADALIMUMAB [Concomitant]
     Active Substance: ADALIMUMAB
     Dosage: 40 MG Q 2 WEEK
     Route: 058
     Dates: start: 201801, end: 201804
  5. ADALIMUMAB [Concomitant]
     Active Substance: ADALIMUMAB
     Dosage: 40 MG Q 1 WEEK
     Route: 058
     Dates: start: 20190708
  6. ADALIMUMAB [Concomitant]
     Active Substance: ADALIMUMAB
     Dosage: 40 MG Q 2 WEEK
     Route: 058
     Dates: start: 202003
  7. ADALIMUMAB [Concomitant]
     Active Substance: ADALIMUMAB
     Dosage: 40 MG Q 1 WEEK
     Route: 058
     Dates: start: 202007
  8. HUMIRA [Concomitant]
     Active Substance: ADALIMUMAB
     Dosage: 40 MG SC Q 1 WEEK
     Route: 058
  9. INDOMETHACIN [Concomitant]
     Active Substance: INDOMETHACIN
     Dosage: 25 MG TID REGULAR
     Route: 048
     Dates: start: 201306, end: 201312
  10. INFLECTRA [Concomitant]
     Active Substance: INFLIXIMAB-DYYB
     Indication: Ankylosing spondylitis
     Dosage: 1 DF UNK DOSE, FREQ
     Route: 042
  11. METHOTREXATE [Concomitant]
     Active Substance: METHOTREXATE
     Indication: Oligoarthritis
     Dosage: 1 DF
     Route: 065
     Dates: start: 2014, end: 2016
  12. METHOTREXATE [Concomitant]
     Active Substance: METHOTREXATE
     Dosage: 20 MG
     Route: 048
     Dates: start: 202102
  13. NAPROXEN [Concomitant]
     Active Substance: NAPROXEN
     Dosage: 500 MG BID
     Route: 048
     Dates: start: 201304, end: 201306
  14. NAPROXEN [Concomitant]
     Active Substance: NAPROXEN
     Dosage: 500 MG BID
     Route: 048
     Dates: start: 201312, end: 201403
  15. PREDNISONE [Concomitant]
     Active Substance: PREDNISONE
     Dosage: UNKNOWN

REACTIONS (12)
  - Gastrointestinal disorder [Unknown]
  - Uveitis [Unknown]
  - Pneumonia [Unknown]
  - Cholecystitis [Unknown]
  - Crohn^s disease [Recovering/Resolving]
  - Infection [Unknown]
  - Condition aggravated [Unknown]
  - Diarrhoea [Unknown]
  - Loss of personal independence in daily activities [Unknown]
  - Myalgia [Unknown]
  - Pain [Recovered/Resolved]
  - Asthenia [Recovered/Resolved]

NARRATIVE: CASE EVENT DATE: 20130101
